FAERS Safety Report 9960579 (Version 1)
Quarter: 2014Q1

REPORT INFORMATION
  Report Type: Spontaneous
  Country: US (occurrence: US)
  Receive Date: 20140305
  Receipt Date: 20140305
  Transmission Date: 20141002
  Serious: No
  Sender: FDA-Public Use
  Company Number: US-ABBVIE-13P-163-1109841-00

PATIENT
  Age: 45 Year
  Sex: Female
  Weight: 59.02 kg

DRUGS (4)
  1. HUMIRA [Suspect]
     Indication: COLITIS ULCERATIVE
     Dates: start: 201301
  2. LABETALOL [Concomitant]
     Indication: BLOOD PRESSURE
  3. HYDROCHLOROTHIAZID [Concomitant]
     Indication: BLOOD PRESSURE
  4. FIORINAL [Concomitant]
     Indication: HEADACHE

REACTIONS (2)
  - Ligament sprain [Recovering/Resolving]
  - Fracture [Unknown]
